FAERS Safety Report 26175524 (Version 1)
Quarter: 2025Q4

REPORT INFORMATION
  Report Type: Spontaneous
  Country: US (occurrence: US)
  Receive Date: 20251218
  Receipt Date: 20251218
  Transmission Date: 20260118
  Serious: Yes (Other)
  Sender: INSUD PHARMA
  Company Number: US-LABORATORIOS LICONSA S.A.-2512US10461

PATIENT

DRUGS (1)
  1. ESTRADIOL VALERATE [Suspect]
     Active Substance: ESTRADIOL VALERATE
     Indication: Transgender hormonal therapy
     Dosage: INJECTION, USING FOR THE LAST 5 YEARS
     Route: 065

REACTIONS (5)
  - Carotid arterial embolus [Unknown]
  - Cerebral infarction [Unknown]
  - Cardio-respiratory arrest [Unknown]
  - Hypertension [Unknown]
  - Depressed level of consciousness [Unknown]
